FAERS Safety Report 22598145 (Version 3)
Quarter: 2023Q4

REPORT INFORMATION
  Report Type: Spontaneous
  Country: US (occurrence: None)
  Receive Date: 20230614
  Receipt Date: 20231003
  Transmission Date: 20240110
  Serious: Yes (Death, Hospitalization)
  Sender: FDA-Public Use
  Company Number: US-MDD US Operations-MDD202205-001223

PATIENT
  Age: 58 Year
  Sex: Female
  Weight: 106.6 kg

DRUGS (10)
  1. APOKYN [Suspect]
     Active Substance: APOMORPHINE HYDROCHLORIDE
     Indication: Parkinson^s disease
     Dosage: 0.4 TO 0.5 MG
     Dates: start: 202010
  2. APOKYN [Suspect]
     Active Substance: APOMORPHINE HYDROCHLORIDE
     Route: 058
  3. APOKYN [Suspect]
     Active Substance: APOMORPHINE HYDROCHLORIDE
     Route: 058
  4. APOKYN [Suspect]
     Active Substance: APOMORPHINE HYDROCHLORIDE
     Dosage: UP TO 0.5ML
     Route: 058
     Dates: start: 202301
  5. APOKYN [Suspect]
     Active Substance: APOMORPHINE HYDROCHLORIDE
     Dates: start: 202011
  6. APOKYN [Suspect]
     Active Substance: APOMORPHINE HYDROCHLORIDE
     Route: 058
     Dates: start: 202009
  7. METFORMIN [Concomitant]
     Active Substance: METFORMIN HYDROCHLORIDE
     Dosage: NOT PROVIDED
  8. CARBIDOPA\LEVODOPA [Concomitant]
     Active Substance: CARBIDOPA\LEVODOPA
     Dosage: NOT PROVIDED
  9. INSULIN NOS [Concomitant]
     Active Substance: INSULIN NOS
     Dosage: NOT PROVIDED
  10. NOURIANZ [Concomitant]
     Active Substance: ISTRADEFYLLINE
     Dosage: NOT PROVIDED

REACTIONS (6)
  - Disease progression [Fatal]
  - Hypotension [Unknown]
  - Pneumonia [Unknown]
  - Urinary tract infection [Unknown]
  - Dyskinesia [Unknown]
  - Device malfunction [Unknown]

NARRATIVE: CASE EVENT DATE: 20220505
